FAERS Safety Report 20028757 (Version 1)
Quarter: 2021Q4

REPORT INFORMATION
  Report Type: Report from Study
  Country: US (occurrence: US)
  Receive Date: 20211103
  Receipt Date: 20211103
  Transmission Date: 20220303
  Serious: Yes (Hospitalization, Other)
  Sender: FDA-Public Use
  Company Number: US-TORRENT-00011304

PATIENT
  Age: 65 Year
  Sex: Male

DRUGS (9)
  1. LACTULOSE [Suspect]
     Active Substance: LACTULOSE
     Indication: Infrequent bowel movements
     Dosage: UNKNOWN
  2. TOCILIZUMAB [Suspect]
     Active Substance: TOCILIZUMAB
     Indication: COVID-19
     Dosage: UNKNOWN
  3. ALBUTEROL [Concomitant]
     Active Substance: ALBUTEROL
     Indication: COVID-19
     Dosage: UNKNOWN
  4. MEROPENEM [Concomitant]
     Active Substance: MEROPENEM
     Indication: COVID-19
     Dosage: UNKNOWN
  5. HYDROXYCHLOROQUINE [Concomitant]
     Active Substance: HYDROXYCHLOROQUINE
     Indication: COVID-19
     Dosage: UNKNOWN
  6. ASCORBIC ACID [Concomitant]
     Active Substance: ASCORBIC ACID
     Indication: COVID-19
     Dosage: UNKNOWN
  7. THIAMINE [Concomitant]
     Active Substance: THIAMINE
     Indication: COVID-19
     Dosage: UNKNOWN
  8. ENOXAPARIN [Concomitant]
     Active Substance: ENOXAPARIN
     Indication: COVID-19
     Dosage: UNKNOWN
  9. METOCLOPRAMIDE [Concomitant]
     Active Substance: METOCLOPRAMIDE
     Indication: Infrequent bowel movements
     Dosage: UNKNOWN

REACTIONS (1)
  - Pneumatosis intestinalis [Recovered/Resolved]
